FAERS Safety Report 5866495-1 (Version None)
Quarter: 2008Q3

REPORT INFORMATION
  Report Type: 
  Country: None (occurrence: None)
  Receive Date: 20080902
  Receipt Date: 20080902
  Transmission Date: 20090109
  Serious: Yes (Hospitalization)
  Sender: FDA-Public Use
  Company Number: PHEH1995US01365

PATIENT
  Sex: Male
  Weight: 72 kg

DRUGS (6)
  1. NEORAL [Suspect]
     Dosage: VARIABLE
     Route: 045
     Dates: start: 19951012, end: 19951013
  2. INSULIN [Concomitant]
  3. PHYTONADIONE [Concomitant]
  4. FLUCONAZOLE [Concomitant]
  5. GANCYCLOVIR (GANCICLOVIR) [Concomitant]
  6. DOPAMINE DMP (DOPAMINE) [Concomitant]

REACTIONS (3)
  - BILE DUCT STENOSIS [None]
  - LIVER FUNCTION TEST ABNORMAL [None]
  - TRANSPLANT REJECTION [None]
